FAERS Safety Report 21692606 (Version 1)
Quarter: 2022Q4

REPORT INFORMATION
  Report Type: Spontaneous
  Country: US (occurrence: US)
  Receive Date: 20221207
  Receipt Date: 20221207
  Transmission Date: 20230113
  Serious: No
  Sender: FDA-Public Use
  Company Number: US-ESPERIONTHERAPEUTICS-2022USA01658

PATIENT
  Age: 83 Year
  Sex: Female

DRUGS (4)
  1. NEXLIZET [Suspect]
     Active Substance: BEMPEDOIC ACID\EZETIMIBE
     Indication: Blood cholesterol increased
     Dosage: 180MG/10MG, QD
     Route: 048
     Dates: start: 20220813, end: 20220825
  2. NEXLIZET [Suspect]
     Active Substance: BEMPEDOIC ACID\EZETIMIBE
     Dosage: 180MG/10MG, QD
     Route: 048
     Dates: start: 20220916, end: 2022
  3. COUMADIN [Concomitant]
     Active Substance: WARFARIN SODIUM
     Indication: Cardiac valve disease
     Dosage: 2.5 OR 5 MILLIGRAM, AS DIRECTED, QD
     Route: 048
  4. METOPROLOL [Concomitant]
     Active Substance: METOPROLOL
     Dosage: 25 MILLIGRAM, QD
     Route: 048

REACTIONS (15)
  - Haemoptysis [Recovered/Resolved]
  - International normalised ratio increased [Not Recovered/Not Resolved]
  - Pelvic pain [Recovering/Resolving]
  - Muscular weakness [Recovering/Resolving]
  - Feeling abnormal [Unknown]
  - Joint noise [Unknown]
  - Gait disturbance [Unknown]
  - Musculoskeletal chest pain [Unknown]
  - Fall [Unknown]
  - Balance disorder [Unknown]
  - Arthralgia [Recovering/Resolving]
  - Back pain [Recovering/Resolving]
  - Pain in extremity [Recovering/Resolving]
  - Nausea [Recovering/Resolving]
  - Fatigue [Unknown]

NARRATIVE: CASE EVENT DATE: 20220101
